FAERS Safety Report 23956950 (Version 1)
Quarter: 2024Q2

REPORT INFORMATION
  Report Type: Spontaneous
  Country: US (occurrence: None)
  Receive Date: 20240608
  Receipt Date: 20240608
  Transmission Date: 20240716
  Serious: Yes (Hospitalization)
  Sender: FDA-Public Use
  Company Number: None

PATIENT
  Age: 76 Year
  Sex: Male

DRUGS (1)
  1. RITUXAN [Suspect]
     Active Substance: RITUXIMAB
     Dosage: 375 MG ONCE IV
     Route: 042
     Dates: start: 20240507, end: 20240507

REACTIONS (3)
  - Serum sickness [None]
  - Chest pain [None]
  - Cough [None]

NARRATIVE: CASE EVENT DATE: 20240515
